FAERS Safety Report 23936405 (Version 2)
Quarter: 2024Q3

REPORT INFORMATION
  Report Type: Spontaneous
  Country: CZ (occurrence: CZ)
  Receive Date: 20240604
  Receipt Date: 20240715
  Transmission Date: 20241017
  Serious: Yes (Other)
  Sender: BAYER
  Company Number: CZ-BAYER-2024A077632

PATIENT
  Age: 48 Year
  Sex: Female

DRUGS (1)
  1. MIRENA [Suspect]
     Active Substance: LEVONORGESTREL
     Dosage: 20?G/DAY
     Route: 015
     Dates: start: 202106

REACTIONS (3)
  - Uterine leiomyoma [None]
  - Genital haemorrhage [Recovered/Resolved]
  - Contraindicated device used [None]

NARRATIVE: CASE EVENT DATE: 20210601
